FAERS Safety Report 8122237-0 (Version None)
Quarter: 2012Q1

REPORT INFORMATION
  Report Type: 
  Country: None (occurrence: None)
  Receive Date: 20120208
  Receipt Date: 20120126
  Transmission Date: 20120608
  Serious: Yes (Other)
  Sender: FDA-Public Use
  Company Number: PT-ROCHE-1035685

PATIENT
  Sex: Female

DRUGS (4)
  1. LASIX [Concomitant]
     Indication: FLUID RETENTION
  2. HERCEPTIN [Suspect]
     Indication: BREAST CANCER
     Route: 042
     Dates: start: 20111027, end: 20111229
  3. HERCEPTIN [Suspect]
     Route: 042
     Dates: start: 20120119
  4. LASIX [Concomitant]
     Indication: OEDEMA
     Route: 048
     Dates: start: 20120101

REACTIONS (7)
  - FLUID RETENTION [None]
  - APNOEA [None]
  - SWELLING [None]
  - NAUSEA [None]
  - OEDEMA [None]
  - FATIGUE [None]
  - ASTHENIA [None]
